FAERS Safety Report 20025854 (Version 1)
Quarter: 2021Q4

REPORT INFORMATION
  Report Type: Spontaneous
  Country: US (occurrence: US)
  Receive Date: 20211102
  Receipt Date: 20211102
  Transmission Date: 20220303
  Serious: Yes (Other)
  Sender: FDA-Public Use
  Company Number: US-BAYER-2021A240858

PATIENT
  Age: 41 Year
  Sex: Male

DRUGS (5)
  1. KOGENATE FS [Suspect]
     Active Substance: ANTIHEMOPHILIC FACTOR, HUMAN RECOMBINANT
     Dosage: 3000 IU, TIW
     Route: 042
  2. KOGENATE FS [Suspect]
     Active Substance: ANTIHEMOPHILIC FACTOR, HUMAN RECOMBINANT
     Dosage: 1 DF, ONCE (EXTRA DOSE TUESDAY)
     Route: 042
     Dates: start: 20211019, end: 20211019
  3. KOGENATE FS [Suspect]
     Active Substance: ANTIHEMOPHILIC FACTOR, HUMAN RECOMBINANT
     Dosage: 1 DF, ONCE (PROPHY DOSE MONDAY)
     Route: 042
     Dates: start: 20211025, end: 20211025
  4. KOGENATE FS [Suspect]
     Active Substance: ANTIHEMOPHILIC FACTOR, HUMAN RECOMBINANT
     Dosage: 1 DF, ONCE (EXTRA DOSE TUESDAY)
     Route: 042
     Dates: start: 20211026, end: 20211026
  5. KOGENATE FS [Suspect]
     Active Substance: ANTIHEMOPHILIC FACTOR, HUMAN RECOMBINANT
     Dosage: 1 DF, ONCE (PROPHY DOSE WEDNESDAY)
     Route: 042
     Dates: start: 20211026, end: 20211026

REACTIONS (2)
  - Haemarthrosis [None]
  - Arthritis [None]

NARRATIVE: CASE EVENT DATE: 20211001
